FAERS Safety Report 21306020 (Version 4)
Quarter: 2023Q1

REPORT INFORMATION
  Report Type: Report from Study
  Country: US (occurrence: US)
  Receive Date: 20220908
  Receipt Date: 20230214
  Transmission Date: 20230418
  Serious: No
  Sender: FDA-Public Use
  Company Number: US-NOVARTISTESTPH-NVSC2022US199763

PATIENT
  Age: 64 Year
  Sex: Male

DRUGS (6)
  1. ENTRESTO [Suspect]
     Active Substance: SACUBITRIL\VALSARTAN
     Indication: Cardiac failure
     Dosage: 50 MG, BID (24/26 MG:50 MG:24.3 MG SACUBITRIL AND 25.7 MG VALSARTAN)
     Route: 048
     Dates: start: 20220827
  2. METOPROLOL SUCCINATE [Suspect]
     Active Substance: METOPROLOL SUCCINATE
     Indication: Product used for unknown indication
     Dosage: 25 MG, QD
     Route: 048
  3. METOPROLOL SUCCINATE [Suspect]
     Active Substance: METOPROLOL SUCCINATE
     Dosage: 12.5 MG, QD (ONE HALF TABLET ONCE A DAY)
     Route: 048
     Dates: start: 202202
  4. ROSUVASTATIN [Suspect]
     Active Substance: ROSUVASTATIN
     Indication: Product used for unknown indication
     Dosage: UNK
     Route: 048
     Dates: start: 2021
  5. HYDROCHLOROTHIAZIDE [Suspect]
     Active Substance: HYDROCHLOROTHIAZIDE
     Indication: Diuretic therapy
     Dosage: 25 MG, QD (12.5 MG ONE CAPSULE MONDAY, WEDNESDAY, AND FRIDAY)
     Route: 048
     Dates: start: 2021
  6. LISINOPRIL [Suspect]
     Active Substance: LISINOPRIL
     Indication: Cardiac failure
     Dosage: UNK
     Route: 048
     Dates: start: 202202, end: 20220825

REACTIONS (11)
  - Pulmonary mass [Unknown]
  - Heart rate increased [Unknown]
  - Aphonia [Recovered/Resolved]
  - Hypersensitivity [Unknown]
  - Abdominal distension [Unknown]
  - Productive cough [Recovered/Resolved]
  - Visual impairment [Unknown]
  - Weight loss poor [Unknown]
  - Fatigue [Unknown]
  - Cough [Recovering/Resolving]
  - Hypotension [Unknown]

NARRATIVE: CASE EVENT DATE: 20220201
